FAERS Safety Report 19779083 (Version 3)
Quarter: 2022Q2

REPORT INFORMATION
  Report Type: Spontaneous
  Country: US (occurrence: US)
  Receive Date: 20210902
  Receipt Date: 20220413
  Transmission Date: 20220720
  Serious: Yes (Hospitalization, Other)
  Sender: FDA-Public Use
  Company Number: US-BAYER-2021-200701

PATIENT
  Age: 68 Year
  Sex: Male
  Weight: 78.7 kg

DRUGS (4)
  1. ASPIRIN [Suspect]
     Active Substance: ASPIRIN
     Indication: Dizziness
     Dosage: 100 MG, QD
     Route: 048
     Dates: start: 20210528, end: 20210608
  2. ATORVASTATIN [Concomitant]
     Active Substance: ATORVASTATIN
  3. LEUPROLIDE ACETATE [Concomitant]
     Active Substance: LEUPROLIDE ACETATE
     Indication: Prostate cancer
     Dosage: 25 MG, Q3MON
     Dates: start: 20190503
  4. LIPIWON [Concomitant]
     Dosage: UNK
     Dates: start: 20210220

REACTIONS (3)
  - Haematuria [Recovered/Resolved]
  - Haemorrhage urinary tract [Recovered/Resolved]
  - Product use in unapproved indication [None]

NARRATIVE: CASE EVENT DATE: 20210528
